FAERS Safety Report 21821377 (Version 2)
Quarter: 2023Q2

REPORT INFORMATION
  Report Type: Spontaneous
  Country: US (occurrence: US)
  Receive Date: 20230105
  Receipt Date: 20230519
  Transmission Date: 20230722
  Serious: Yes (Other)
  Sender: FDA-Public Use
  Company Number: US-SUN PHARMACEUTICAL INDUSTRIES LTD-2022R1-371857

PATIENT
  Age: 36 Year
  Sex: Female

DRUGS (1)
  1. METHYLPHENIDATE [Suspect]
     Active Substance: METHYLPHENIDATE
     Indication: Craniocerebral injury
     Dosage: COMPARABLE DOSE OF EXTENDED-RELEASE
     Route: 065
     Dates: start: 202201

REACTIONS (1)
  - Raynaud^s phenomenon [Recovering/Resolving]
